FAERS Safety Report 8110081-X (Version None)
Quarter: 2012Q1

REPORT INFORMATION
  Report Type: 
  Country: None (occurrence: None)
  Receive Date: 20120202
  Receipt Date: 20120104
  Transmission Date: 20120608
  Serious: Yes (Death)
  Sender: FDA-Public Use
  Company Number: US-COVIDIEN/TYCO HEALTHCARE/MALLINCKRODT-T201200110

PATIENT
  Age: 55 Year
  Sex: Female

DRUGS (13)
  1. HYDROCODONE BITARTRATE [Suspect]
     Route: 048
  2. GABAPENTIN [Suspect]
     Route: 048
  3. EZETIMIBE/SIMVASTATIN [Suspect]
     Route: 048
  4. PRAVASTATIN [Suspect]
     Route: 048
  5. OXYCODONE HCL [Suspect]
     Route: 048
  6. LISINOPRIL [Suspect]
     Route: 048
  7. ALPRAZOLAM [Suspect]
     Route: 048
  8. NAPROXEN [Suspect]
     Route: 048
  9. CYCLOBENZAPRINE [Suspect]
     Route: 048
  10. CIMETIDINE [Suspect]
     Route: 048
  11. MORPHINE [Suspect]
     Route: 048
  12. MONTELUKAST [Suspect]
     Route: 048
  13. COCAINE [Suspect]
     Route: 048

REACTIONS (1)
  - DEATH [None]
